FAERS Safety Report 9747128 (Version 1)
Quarter: 2013Q4

REPORT INFORMATION
  Report Type: Spontaneous
  Country: US (occurrence: US)
  Receive Date: 20131211
  Receipt Date: 20131211
  Transmission Date: 20140711
  Serious: No
  Sender: FDA-Public Use
  Company Number: US-009507513-1312USA003593

PATIENT
  Age: 18 Year
  Sex: Female
  Weight: 82.99 kg

DRUGS (1)
  1. NEXPLANON [Suspect]
     Indication: CONTRACEPTION
     Dosage: EVERY 3 YEARS
     Route: 059
     Dates: start: 20130204

REACTIONS (4)
  - Menorrhagia [Not Recovered/Not Resolved]
  - Menstruation irregular [Not Recovered/Not Resolved]
  - Mood swings [Not Recovered/Not Resolved]
  - Breast tenderness [Not Recovered/Not Resolved]
